FAERS Safety Report 9198567 (Version 2)
Quarter: 2013Q2

REPORT INFORMATION
  Report Type: Spontaneous
  Country: US (occurrence: US)
  Receive Date: 20130329
  Receipt Date: 20130605
  Transmission Date: 20140414
  Serious: Yes (Hospitalization)
  Sender: FDA-Public Use
  Company Number: US-ELI_LILLY_AND_COMPANY-US201112003018

PATIENT
  Age: 82 Year
  Sex: Female

DRUGS (10)
  1. FORTEO [Suspect]
     Indication: OSTEOPOROSIS
     Dosage: 20 UG, QD
     Dates: start: 201103
  2. FORTEO [Suspect]
     Dosage: 20 UG, QD
  3. FORTEO [Suspect]
     Dosage: 20 UG, QD
  4. FORTEO [Suspect]
     Dosage: 20 UG, QD
  5. FORTEO [Suspect]
     Dosage: UNK, QD
     Dates: end: 20121120
  6. FORTEO [Suspect]
     Dosage: UNK, QD
     Dates: start: 20130220, end: 20130318
  7. FOSAMAX [Concomitant]
  8. TRAVATAN [Concomitant]
  9. ASPIRIN [Concomitant]
  10. SIMVASTATIN [Concomitant]

REACTIONS (19)
  - Calculus ureteric [Recovered/Resolved]
  - Hydronephrosis [Recovered/Resolved]
  - Escherichia sepsis [Recovered/Resolved]
  - Synovial cyst [Unknown]
  - Oedema peripheral [Unknown]
  - Gait disturbance [Unknown]
  - Limb injury [Unknown]
  - Limb discomfort [Unknown]
  - Pain in extremity [Not Recovered/Not Resolved]
  - Memory impairment [Unknown]
  - Cataract operation [Unknown]
  - Anger [Unknown]
  - Arthropathy [Unknown]
  - Nasopharyngitis [Unknown]
  - Arthralgia [Not Recovered/Not Resolved]
  - Pain [Unknown]
  - Tremor [Unknown]
  - Urinary incontinence [Unknown]
  - Blood magnesium decreased [Unknown]
